FAERS Safety Report 23503674 (Version 6)
Quarter: 2025Q1

REPORT INFORMATION
  Report Type: Report from Study
  Country: GB (occurrence: GB)
  Receive Date: 20240209
  Receipt Date: 20250208
  Transmission Date: 20250408
  Serious: Yes (Hospitalization, Other)
  Sender: JOHNSON AND JOHNSON
  Company Number: GB-JNJFOC-20231067659

PATIENT
  Age: 8 Decade
  Sex: Male

DRUGS (1)
  1. ERLEADA [Suspect]
     Active Substance: APALUTAMIDE
     Indication: Prostate cancer
     Route: 048
     Dates: start: 20230302, end: 20240131

REACTIONS (9)
  - Orthostatic hypotension [Unknown]
  - Headache [Recovering/Resolving]
  - Blood magnesium decreased [Recovered/Resolved]
  - Macular degeneration [Unknown]
  - Pruritus [Recovered/Resolved]
  - Fall [Recovered/Resolved]
  - Balance disorder [Recovering/Resolving]
  - Diarrhoea [Recovering/Resolving]
  - Thyroid disorder [Recovering/Resolving]

NARRATIVE: CASE EVENT DATE: 20230101
